FAERS Safety Report 9949835 (Version 1)
Quarter: 2014Q1

REPORT INFORMATION
  Report Type: Spontaneous
  Country: US (occurrence: US)
  Receive Date: 20140304
  Receipt Date: 20140304
  Transmission Date: 20141002
  Serious: No
  Sender: FDA-Public Use
  Company Number: US-ABBVIE-13P-163-1069149-00

PATIENT
  Age: 40 Year
  Sex: Female
  Weight: 49.49 kg

DRUGS (14)
  1. HUMIRA [Suspect]
     Indication: PSORIATIC ARTHROPATHY
     Dates: start: 201202
  2. HUMIRA [Suspect]
     Indication: PSORIASIS
  3. SYNTHROID [Concomitant]
     Indication: HYPOTHYROIDISM
  4. PHENERGAN [Concomitant]
     Indication: NAUSEA
     Dosage: 1/2 TABLET: 25 MG
     Route: 048
  5. PHENERGAN [Concomitant]
     Indication: PEPTIC ULCER
  6. PHENERGAN [Concomitant]
     Indication: MIGRAINE
     Dosage: 25 MG
  7. METFORMIN [Concomitant]
     Indication: TYPE 2 DIABETES MELLITUS
  8. PROZAC [Concomitant]
     Indication: DEPRESSION
  9. ATIVAN [Concomitant]
     Indication: ANXIETY
  10. OXYCODONE [Concomitant]
     Indication: PRODUCT USED FOR UNKNOWN INDICATION
     Dosage: 10 MG
  11. DURAGESIC FENTANYL [Concomitant]
     Indication: PAIN
  12. NEXIUM [Concomitant]
     Indication: PEPTIC ULCER
  13. FLUOXETINE [Concomitant]
     Indication: DEPRESSION
  14. METFORMIN [Concomitant]
     Indication: DIABETES MELLITUS

REACTIONS (3)
  - Device malfunction [Recovered/Resolved]
  - Incorrect dose administered [Recovered/Resolved]
  - Injection site haemorrhage [Recovered/Resolved]
